FAERS Safety Report 10644353 (Version 4)
Quarter: 2016Q1

REPORT INFORMATION
  Report Type: Spontaneous
  Country: US (occurrence: US)
  Receive Date: 20141210
  Receipt Date: 20160311
  Transmission Date: 20160525
  Serious: Yes (Other)
  Sender: FDA-Public Use
  Company Number: US-PFIZER INC-2014338790

PATIENT
  Age: 55 Year
  Sex: Female
  Weight: 69.84 kg

DRUGS (5)
  1. GABAPENTIN. [Concomitant]
     Active Substance: GABAPENTIN
     Dosage: 100 MG, 3X/DAY
  2. LYRICA [Suspect]
     Active Substance: PREGABALIN
     Indication: PAIN IN EXTREMITY
     Dosage: 150 MG, 1X/DAY (AT NIGHT)
     Route: 048
  3. LYRICA [Suspect]
     Active Substance: PREGABALIN
     Dosage: 150 MG, 2X/DAY
     Route: 048
  4. LISINOPRIL. [Concomitant]
     Active Substance: LISINOPRIL
     Dosage: 40 MG, 1X/DAY
  5. URSODIOL. [Concomitant]
     Active Substance: URSODIOL
     Indication: BILE ACID MALABSORPTION
     Dosage: 300 MG, 2X/DAY

REACTIONS (7)
  - Rheumatoid arthritis [Unknown]
  - Intervertebral disc protrusion [Unknown]
  - Nerve injury [Unknown]
  - Hepatic neoplasm [Unknown]
  - Hepatic cirrhosis [Unknown]
  - Hypertension [Unknown]
  - Neuropathy peripheral [Unknown]

NARRATIVE: CASE EVENT DATE: 201407
